FAERS Safety Report 7919956-5 (Version None)
Quarter: 2011Q4

REPORT INFORMATION
  Report Type: 
  Country: None (occurrence: None)
  Receive Date: 20111117
  Receipt Date: 20111113
  Transmission Date: 20120403
  Serious: Yes (Other)
  Sender: FDA-Public Use
  Company Number: US-BAYER-2011-110279

PATIENT
  Age: 46 Year
  Sex: Male
  Weight: 98 kg

DRUGS (3)
  1. EPINEPHRINE [Concomitant]
  2. ALEVE (CAPLET) [Suspect]
     Indication: MYALGIA
     Dosage: 2 DF, PRN
     Route: 048
     Dates: start: 20110429, end: 20111101
  3. CARTIA XT [Concomitant]

REACTIONS (5)
  - HYPERSENSITIVITY [None]
  - RESPIRATORY DISTRESS [None]
  - SWOLLEN TONGUE [None]
  - LIP SWELLING [None]
  - URTICARIA [None]
